FAERS Safety Report 18685935 (Version 1)
Quarter: 2020Q4

REPORT INFORMATION
  Report Type: Spontaneous
  Country: IT (occurrence: IT)
  Receive Date: 20201230
  Receipt Date: 20201230
  Transmission Date: 20210114
  Serious: Yes (Death, Hospitalization, Other)
  Sender: FDA-Public Use
  Company Number: IT-PFIZER INC-2020507175

PATIENT
  Age: 26 Year
  Sex: Male

DRUGS (10)
  1. BLEOMYCIN [Suspect]
     Active Substance: BLEOMYCIN SULFATE
     Indication: HODGKIN^S DISEASE RECURRENT
     Dosage: UNK
  2. VINCRISTINE SULFATE. [Suspect]
     Active Substance: VINCRISTINE SULFATE
     Indication: HODGKIN^S DISEASE RECURRENT
     Dosage: UNK
  3. PROCARBAZINE [Suspect]
     Active Substance: PROCARBAZINE
     Indication: HODGKIN^S DISEASE RECURRENT
     Dosage: UNK
  4. DOXORUBICIN HCL [Suspect]
     Active Substance: DOXORUBICIN HYDROCHLORIDE
     Indication: HODGKIN^S DISEASE RECURRENT
     Dosage: UNK
  5. DACARBAZINE. [Suspect]
     Active Substance: DACARBAZINE
     Indication: HODGKIN^S DISEASE RECURRENT
     Dosage: UNK
  6. OCTREOTIDE. [Concomitant]
     Active Substance: OCTREOTIDE
     Indication: LEIOMYOSARCOMA METASTATIC
     Dosage: 20 MG, MONTHLY (FREQ:28 D)
     Route: 058
  7. VINBLASTINE [Suspect]
     Active Substance: VINBLASTINE
     Indication: HODGKIN^S DISEASE RECURRENT
     Dosage: UNK
  8. PREDNISONE. [Suspect]
     Active Substance: PREDNISONE
     Indication: HODGKIN^S DISEASE RECURRENT
     Dosage: UNK
  9. GEMCITABINE. [Concomitant]
     Active Substance: GEMCITABINE
     Indication: LEIOMYOSARCOMA METASTATIC
     Dosage: UNK
  10. MECHLORETHAMINE [Suspect]
     Active Substance: MECHLORETHAMINE
     Indication: HODGKIN^S DISEASE RECURRENT
     Dosage: UNK

REACTIONS (5)
  - Leiomyosarcoma [Fatal]
  - Neoplasm progression [Fatal]
  - Renal artery stenosis [Recovered/Resolved]
  - Second primary malignancy [Fatal]
  - Hypertension [Recovered/Resolved]
